FAERS Safety Report 25476284 (Version 1)
Quarter: 2025Q2

REPORT INFORMATION
  Report Type: Spontaneous
  Country: CA (occurrence: CA)
  Receive Date: 20250625
  Receipt Date: 20250625
  Transmission Date: 20250716
  Serious: Yes (Death)
  Sender: NOVO NORDISK
  Company Number: None

PATIENT
  Age: 3 Year
  Sex: Female

DRUGS (4)
  1. NIASTASE [Suspect]
     Active Substance: COAGULATION FACTOR VIIA RECOMBINANT HUMAN
     Indication: Acquired haemophilia
     Route: 042
  2. NIASTASE [Suspect]
     Active Substance: COAGULATION FACTOR VIIA RECOMBINANT HUMAN
     Route: 042
  3. METHYLPREDNISOLONE [Suspect]
     Active Substance: METHYLPREDNISOLONE
     Indication: Acquired haemophilia
     Dosage: 30 MG/KG, QD
     Route: 042
  4. TRANEXAMIC ACID [Suspect]
     Active Substance: TRANEXAMIC ACID
     Indication: Acquired haemophilia

REACTIONS (1)
  - Drug ineffective [Fatal]
